FAERS Safety Report 8363748-2 (Version None)
Quarter: 2012Q1

REPORT INFORMATION
  Report Type: 
  Country: None (occurrence: None)
  Receive Date: 20120323
  Receipt Date: 20110413
  Transmission Date: 20120608
  Serious: Yes (Other)
  Sender: FDA-Public Use
  Company Number: 163-21880-11041666

PATIENT
  Age: 46 Year
  Sex: Male
  Weight: 49.8957 kg

DRUGS (9)
  1. COLACE (DOCUSATE SODIUM) [Concomitant]
  2. OXYCODONE HCL [Concomitant]
  3. FENTANYL-100 [Concomitant]
  4. PREVACID [Concomitant]
  5. SENOKOT [Concomitant]
  6. ATIVAN [Concomitant]
  7. DEXAMETHASONE [Concomitant]
  8. RESTORIL [Concomitant]
  9. REVLIMID [Suspect]
     Indication: MULTIPLE MYELOMA
     Dosage: 25 MG, DAILY FOR 21 DAYS, PO
     Route: 048
     Dates: start: 20110326

REACTIONS (1)
  - OEDEMA PERIPHERAL [None]
